FAERS Safety Report 8832864 (Version 1)
Quarter: 2012Q4

REPORT INFORMATION
  Report Type: 
  Country: US (occurrence: None)
  Receive Date: 20121009
  Receipt Date: 20121009
  Transmission Date: 20130627
  Serious: Yes (Hospitalization)
  Sender: FDA-Public Use
  Company Number: None

PATIENT
  Sex: Male
  Weight: 84 kg

DRUGS (2)
  1. EVEROLIMUS [Suspect]
     Dates: start: 20120829, end: 20120924
  2. SANDOSTATIN [Suspect]
     Dates: end: 20120925

REACTIONS (4)
  - Metastatic carcinoid tumour [None]
  - Hepatorenal syndrome [None]
  - Renal failure [None]
  - Malignant neoplasm progression [None]
